FAERS Safety Report 25742815 (Version 1)
Quarter: 2025Q3

REPORT INFORMATION
  Report Type: Spontaneous
  Country: JP (occurrence: JP)
  Receive Date: 20250830
  Receipt Date: 20250830
  Transmission Date: 20251021
  Serious: Yes (Other)
  Sender: ALEXION PHARMACEUTICALS
  Company Number: JP-AstraZeneca-CH-00937836A

PATIENT
  Sex: Female

DRUGS (2)
  1. IMFINZI [Suspect]
     Active Substance: DURVALUMAB
     Indication: Endometrial cancer
     Route: 065
  2. LYNPARZA [Suspect]
     Active Substance: OLAPARIB
     Route: 065

REACTIONS (2)
  - Malaise [Unknown]
  - Neuropathy peripheral [Unknown]
